FAERS Safety Report 4937707-3 (Version None)
Quarter: 2006Q1

REPORT INFORMATION
  Report Type: 
  Country: None (occurrence: None)
  Receive Date: 20060309
  Receipt Date: 20050805
  Transmission Date: 20060701
  Serious: Yes (Hospitalization)
  Sender: FDA-Public Use
  Company Number: CH-MERCK-0508CHE00005

PATIENT
  Sex: Male

DRUGS (8)
  1. VIOXX [Suspect]
     Indication: BACK PAIN
     Route: 048
     Dates: start: 20020101, end: 20041001
  2. VIOXX [Suspect]
     Route: 048
     Dates: start: 20020101, end: 20041001
  3. VIOXX [Suspect]
     Indication: INTERVERTEBRAL DISC DEGENERATION
     Route: 048
     Dates: start: 20020101, end: 20041001
  4. VIOXX [Suspect]
     Route: 048
     Dates: start: 20020101, end: 20041001
  5. ATORVASTATIN CALCIUM [Concomitant]
     Route: 048
  6. ASPIRIN [Concomitant]
     Route: 048
  7. CLOPIDOGREL BISULFATE [Concomitant]
     Route: 048
  8. METOPROLOL TARTRATE [Concomitant]
     Route: 048

REACTIONS (1)
  - CORONARY ARTERY OCCLUSION [None]
